FAERS Safety Report 19738914 (Version 3)
Quarter: 2022Q3

REPORT INFORMATION
  Report Type: Spontaneous
  Country: CA (occurrence: CA)
  Receive Date: 20210824
  Receipt Date: 20220902
  Transmission Date: 20221026
  Serious: Yes (Hospitalization)
  Sender: FDA-Public Use
  Company Number: CA-SAMSUNG BIOEPIS-SB-2021-20029

PATIENT
  Age: 65 Year
  Sex: Female
  Weight: 41 kg

DRUGS (1)
  1. INFLIXIMAB [Suspect]
     Active Substance: INFLIXIMAB
     Indication: Crohn^s disease
     Route: 042

REACTIONS (17)
  - Asthenia [Recovered/Resolved]
  - Balance disorder [Recovered/Resolved]
  - Blood pressure systolic increased [Recovered/Resolved]
  - Cerebrovascular accident [Recovered/Resolved]
  - Condition aggravated [Recovered/Resolved]
  - Gait disturbance [Recovered/Resolved]
  - Incontinence [Recovered/Resolved]
  - Malaise [Recovered/Resolved]
  - Memory impairment [Recovered/Resolved]
  - Mobility decreased [Recovered/Resolved]
  - Oedema genital [Recovered/Resolved]
  - Vein collapse [Recovered/Resolved]
  - Vulval disorder [Recovered/Resolved]
  - Blood glucose decreased [Recovered/Resolved]
  - Drug ineffective [Recovered/Resolved]
  - Intentional product use issue [Recovered/Resolved]
  - Off label use [Recovered/Resolved]
